FAERS Safety Report 10898497 (Version 1)
Quarter: 2015Q1

REPORT INFORMATION
  Report Type: Spontaneous
  Country: US (occurrence: None)
  Receive Date: 20150303
  Receipt Date: 20150303
  Transmission Date: 20150721
  Serious: Yes (Hospitalization)
  Sender: FDA-Public Use
  Company Number: None

PATIENT
  Age: 41 Year
  Sex: Female
  Weight: 116 kg

DRUGS (1)
  1. TERBINAFINE [Suspect]
     Active Substance: TERBINAFINE
     Indication: FUNGAL INFECTION
     Route: 048
     Dates: start: 20130107, end: 20130203

REACTIONS (4)
  - Stevens-Johnson syndrome [None]
  - Acute generalised exanthematous pustulosis [None]
  - Skin infection [None]
  - Soft tissue infection [None]

NARRATIVE: CASE EVENT DATE: 20130211
